FAERS Safety Report 5842016-4 (Version None)
Quarter: 2008Q3

REPORT INFORMATION
  Report Type: 
  Country: None (occurrence: None)
  Receive Date: 20080811
  Receipt Date: 20080811
  Transmission Date: 20090109
  Serious: No
  Sender: FDA-Public Use
  Company Number: None

PATIENT
  Age: 82 Year
  Sex: Female
  Weight: 81.6475 kg

DRUGS (1)
  1. PYRIDOSTIGMINE BROMIDE [Suspect]
     Indication: MYASTHENIA GRAVIS
     Dosage: 60 MG 4-5 TIMES DAILY PO
     Route: 048
     Dates: start: 20071023, end: 20080712

REACTIONS (3)
  - DIARRHOEA [None]
  - MUSCLE FATIGUE [None]
  - PHARMACEUTICAL PRODUCT COMPLAINT [None]
